FAERS Safety Report 6418190-8 (Version None)
Quarter: 2009Q4

REPORT INFORMATION
  Report Type: 
  Country: None (occurrence: None)
  Receive Date: 20091028
  Receipt Date: 20091019
  Transmission Date: 20100525
  Serious: Yes (Other)
  Sender: FDA-Public Use
  Company Number: US-ELI_LILLY_AND_COMPANY-US200910004635

PATIENT
  Age: 52 Year
  Sex: Male
  Weight: 58.957 kg

DRUGS (1)
  1. GEMZAR [Suspect]
     Indication: BILE DUCT CANCER
     Dosage: 3 WEEKS ON, 1 WEEK OFF
     Dates: start: 20090529

REACTIONS (6)
  - BOWEL MOVEMENT IRREGULARITY [None]
  - CHILLS [None]
  - FATIGUE [None]
  - FEELING COLD [None]
  - REGURGITATION [None]
  - WEIGHT DECREASED [None]
